FAERS Safety Report 6810084-9 (Version None)
Quarter: 2010Q2

REPORT INFORMATION
  Report Type: 
  Country: None (occurrence: None)
  Receive Date: 20100630
  Receipt Date: 20100623
  Transmission Date: 20101027
  Serious: Yes (Hospitalization)
  Sender: FDA-Public Use
  Company Number: GB-ROCHE-711324

PATIENT
  Sex: Female
  Weight: 71.6 kg

DRUGS (3)
  1. TRASTUZUMAB [Suspect]
     Indication: BREAST CANCER
     Route: 042
     Dates: start: 20091117, end: 20091230
  2. TRASTUZUMAB [Suspect]
     Route: 042
  3. TAMOXIFEN [Concomitant]
     Indication: BREAST CANCER
     Route: 048

REACTIONS (1)
  - PLEURITIC PAIN [None]
